FAERS Safety Report 11964528 (Version 4)
Quarter: 2016Q3

REPORT INFORMATION
  Report Type: Report from Study
  Country: JP (occurrence: JP)
  Receive Date: 20160127
  Receipt Date: 20160711
  Transmission Date: 20161109
  Serious: Yes (Death)
  Sender: FDA-Public Use
  Company Number: JP-ROCHE-1698941

PATIENT
  Sex: Male
  Weight: 43 kg

DRUGS (12)
  1. ALLOPURINOL. [Concomitant]
     Active Substance: ALLOPURINOL
     Route: 065
     Dates: start: 20141127
  2. TEPRENONE [Concomitant]
     Active Substance: TEPRENONE
     Route: 065
     Dates: start: 20141016
  3. GATIFLOXACIN. [Concomitant]
     Active Substance: GATIFLOXACIN
  4. RANIBIZUMAB [Suspect]
     Active Substance: RANIBIZUMAB
     Indication: RETINAL VEIN OCCLUSION
     Route: 031
     Dates: start: 20141113, end: 20141113
  5. ISCOTIN [Concomitant]
     Active Substance: ISONIAZID
     Route: 065
     Dates: start: 20150128
  6. COSOPT [Concomitant]
     Active Substance: DORZOLAMIDE HYDROCHLORIDE\TIMOLOL MALEATE
     Route: 065
     Dates: start: 20150113
  7. BROTIZOLAM [Concomitant]
     Active Substance: BROTIZOLAM
     Route: 065
     Dates: start: 20141016
  8. SHAKUYAKUKANZOTO [Concomitant]
     Active Substance: HERBALS
     Route: 065
  9. SM POWDER [Concomitant]
     Route: 065
     Dates: start: 20140112
  10. METHYCOBAL [Concomitant]
     Active Substance: METHYLCOBALAMIN
     Route: 065
     Dates: start: 20141024
  11. RINDERON V [Concomitant]
     Active Substance: BETAMETHASONE VALERATE
     Route: 065
     Dates: start: 20150116
  12. PYDOXAL [Concomitant]
     Active Substance: PYRIDOXAL
     Route: 065
     Dates: start: 20150128

REACTIONS (1)
  - Polymyalgia rheumatica [Fatal]
